FAERS Safety Report 23820392 (Version 2)
Quarter: 2024Q2

REPORT INFORMATION
  Report Type: Spontaneous
  Country: US (occurrence: US)
  Receive Date: 20240506
  Receipt Date: 20240529
  Transmission Date: 20240715
  Serious: No
  Sender: FDA-Public Use
  Company Number: US-TEVA-VS-3185653

PATIENT
  Age: 59 Year
  Sex: Male

DRUGS (24)
  1. COPAXONE [Suspect]
     Active Substance: GLATIRAMER ACETATE
     Indication: Product used for unknown indication
     Route: 065
  2. OMEPRAZOLE [Concomitant]
     Active Substance: DONEPEZIL HYDROCHLORIDE\OMEPRAZOLE\OMEPRAZOLE MAGNESIUM
  3. XARELTO [Concomitant]
     Active Substance: RIVAROXABAN
  4. VENTOLIN HFA [Concomitant]
     Active Substance: ALBUTEROL SULFATE
  5. TROKENDI XR [Concomitant]
     Active Substance: TOPIRAMATE
  6. TRAZODONE [Concomitant]
     Active Substance: TRAZODONE HYDROCHLORIDE
  7. Nystatin 100 [Concomitant]
  8. PRIMIDONE [Concomitant]
     Active Substance: PRIMIDONE
  9. VITAMIN D3 [Concomitant]
     Active Substance: CHOLECALCIFEROL
  10. AMANTADINE [Concomitant]
     Active Substance: AMANTADINE
  11. MARINOL [Concomitant]
     Active Substance: DRONABINOL
  12. SOLU-MEDROL [Concomitant]
     Active Substance: METHYLPREDNISOLONE SODIUM SUCCINATE
  13. DRONABINOL [Concomitant]
     Active Substance: DRONABINOL
  14. SEROQUEL [Concomitant]
     Active Substance: QUETIAPINE FUMARATE
  15. BACLOFEN [Concomitant]
     Active Substance: BACLOFEN
  16. ALLEGRA [Concomitant]
     Active Substance: FEXOFENADINE HYDROCHLORIDE
  17. VITACRAVES MEN^S?MULTIVITAMIN [Concomitant]
  18. CALTRATE+D [Concomitant]
  19. AIRBORNE [Concomitant]
     Active Substance: HERBALS\MINERALS\VITAMINS
  20. LYRICA [Concomitant]
     Active Substance: PREGABALIN
  21. OCREVUS [Concomitant]
     Active Substance: OCRELIZUMAB
  22. AVONEX [Concomitant]
     Active Substance: INTERFERON BETA-1A
  23. AUBAGIO [Concomitant]
     Active Substance: TERIFLUNOMIDE
  24. KESIMPTA [Concomitant]
     Active Substance: OFATUMUMAB

REACTIONS (1)
  - Drug ineffective [Unknown]
